FAERS Safety Report 26061216 (Version 1)
Quarter: 2025Q4

REPORT INFORMATION
  Report Type: Spontaneous
  Country: US (occurrence: US)
  Receive Date: 20251118
  Receipt Date: 20251118
  Transmission Date: 20260118
  Serious: Yes (Hospitalization, Other)
  Sender: MYLAN
  Company Number: US-MYLANLABS-2025M1097462

PATIENT
  Age: 76 Year
  Sex: Female

DRUGS (4)
  1. NEURONTIN [Suspect]
     Active Substance: GABAPENTIN
     Indication: Neuralgia
     Dosage: UNK
  2. NEURONTIN [Suspect]
     Active Substance: GABAPENTIN
     Dosage: 1200 MILLIGRAM, Q8H (EVERY EIGHT HOURS TOTAL DAILY DOSE 3600 MG)
  3. NORCO [Concomitant]
     Active Substance: ACETAMINOPHEN\HYDROCODONE BITARTRATE
     Indication: Pain management
     Dosage: UNK
  4. MOVANTIK [Concomitant]
     Active Substance: NALOXEGOL OXALATE
     Indication: Functional gastrointestinal disorder
     Dosage: UNK

REACTIONS (10)
  - Seizure [Recovered/Resolved]
  - Hospitalisation [Unknown]
  - Cardio-respiratory arrest [Recovered/Resolved]
  - Loss of consciousness [Recovered/Resolved]
  - Burning sensation [Recovered/Resolved]
  - Head injury [Recovered/Resolved]
  - Pain [Recovered/Resolved]
  - Increased dose administered [Unknown]
  - Product dose omission issue [Unknown]
  - Product availability issue [Unknown]
